FAERS Safety Report 25534599 (Version 1)
Quarter: 2025Q3

REPORT INFORMATION
  Report Type: Spontaneous
  Country: US (occurrence: None)
  Receive Date: 20250708
  Receipt Date: 20250708
  Transmission Date: 20251021
  Serious: Yes (Hospitalization)
  Sender: FDA-CTU
  Company Number: None

PATIENT
  Age: 57 Year
  Sex: Male

DRUGS (1)
  1. LENALIDOMIDE [Suspect]
     Active Substance: LENALIDOMIDE
     Indication: Organ transplant
     Dosage: 10 MG DAILY ORAL
     Route: 048
     Dates: start: 20250504, end: 20250507

REACTIONS (2)
  - Pneumonia [None]
  - Product use issue [None]

NARRATIVE: CASE EVENT DATE: 20250504
